FAERS Safety Report 11472981 (Version 3)
Quarter: 2019Q4

REPORT INFORMATION
  Report Type: Spontaneous
  Country: SE (occurrence: SE)
  Receive Date: 20150908
  Receipt Date: 20191209
  Transmission Date: 20200122
  Serious: Yes (Life-Threatening, Hospitalization, Other)
  Sender: FDA-Public Use
  Company Number: SE-JAZZ-2014-SE-008250

PATIENT
  Age: 25 Year
  Sex: Female

DRUGS (5)
  1. XYREM [Suspect]
     Active Substance: SODIUM OXYBATE
     Indication: SLEEP DISORDER
     Dosage: 3 G, BID
     Route: 048
     Dates: start: 20120328, end: 20140608
  2. XYREM [Suspect]
     Active Substance: SODIUM OXYBATE
     Indication: NARCOLEPSY
  3. FLUOXETINE [Concomitant]
     Active Substance: FLUOXETINE HYDROCHLORIDE
     Indication: CATAPLEXY
     Dosage: 60 MG, QD
     Route: 065
     Dates: start: 20130614
  4. AMPHETAMINE [Concomitant]
     Active Substance: AMPHETAMINE
     Indication: NARCOLEPSY
     Dosage: 5 MG, BID
     Route: 065
     Dates: start: 20131028
  5. XYREM [Suspect]
     Active Substance: SODIUM OXYBATE
     Indication: NIGHTMARE
     Dosage: 90-180 G AT ONCE
     Route: 065
     Dates: start: 20140609, end: 20140609

REACTIONS (4)
  - Vomiting [Recovered/Resolved]
  - Suicide attempt [Recovering/Resolving]
  - Loss of consciousness [Recovered/Resolved]
  - Overdose [Recovered/Resolved]

NARRATIVE: CASE EVENT DATE: 20140609
